FAERS Safety Report 21871778 (Version 1)
Quarter: 2023Q1

REPORT INFORMATION
  Report Type: Spontaneous
  Country: AT (occurrence: AT)
  Receive Date: 20230117
  Receipt Date: 20230117
  Transmission Date: 20230417
  Serious: Yes (Death)
  Sender: FDA-Public Use
  Company Number: AT-DSJP-DSE-2023-101359

PATIENT
  Sex: Female

DRUGS (1)
  1. ENHERTU [Suspect]
     Active Substance: FAM-TRASTUZUMAB DERUXTECAN-NXKI
     Indication: HER2 positive breast cancer
     Dosage: 5.6 MG/KG
     Route: 065
     Dates: start: 202210, end: 202301

REACTIONS (1)
  - Staphylococcal infection [Fatal]

NARRATIVE: CASE EVENT DATE: 20230101
